FAERS Safety Report 7558875-3 (Version None)
Quarter: 2011Q2

REPORT INFORMATION
  Report Type: 
  Country: None (occurrence: None)
  Receive Date: 20110613
  Receipt Date: 20110531
  Transmission Date: 20111010
  Serious: Yes (Other)
  Sender: FDA-Public Use
  Company Number: 2011MA006597

PATIENT
  Age: 5 Month
  Sex: Female

DRUGS (2)
  1. METOCLOPRAMIDE [Suspect]
     Indication: NAUSEA
     Dosage: 2 MG/KG; OD;
  2. METOCLOPRAMIDE [Suspect]
     Indication: VOMITING
     Dosage: 2 MG/KG; OD;

REACTIONS (12)
  - ACCIDENTAL OVERDOSE [None]
  - HYPERTONIA [None]
  - OPISTHOTONUS [None]
  - NYSTAGMUS [None]
  - INCORRECT DOSE ADMINISTERED [None]
  - DYSTONIA [None]
  - JAW DISORDER [None]
  - TONGUE DISORDER [None]
  - CONVULSION [None]
  - RESPIRATORY RATE INCREASED [None]
  - HEART RATE INCREASED [None]
  - BLOOD PRESSURE SYSTOLIC DECREASED [None]
